FAERS Safety Report 5197734-0 (Version None)
Quarter: 2006Q4

REPORT INFORMATION
  Report Type: 
  Country: None (occurrence: None)
  Receive Date: 20061227
  Receipt Date: 20061215
  Transmission Date: 20070319
  Serious: Yes (Hospitalization, Other)
  Sender: FDA-Public Use
  Company Number: 2006090567

PATIENT
  Age: 57 Year
  Sex: Male
  Weight: 80 kg

DRUGS (3)
  1. ATORVASTATIN CALCIUM [Suspect]
     Dosage: 40 MG (40 MG, 1 IN 1 D)
     Dates: start: 20000101
  2. ATENOLOL [Concomitant]
  3. KARDEGIC (ACETYLSALICYLATE LYSINE) [Concomitant]

REACTIONS (4)
  - ERECTILE DYSFUNCTION [None]
  - NEURITIS [None]
  - QUADRIPLEGIA [None]
  - RADICULOPATHY [None]
